FAERS Safety Report 10359024 (Version 2)
Quarter: 2015Q3

REPORT INFORMATION
  Report Type: Spontaneous
  Country: FR (occurrence: FR)
  Receive Date: 20140804
  Receipt Date: 20150729
  Transmission Date: 20151125
  Serious: Yes (Other)
  Sender: FDA-Public Use
  Company Number: FR-ACCORD-025107

PATIENT
  Age: 78 Year
  Sex: Female

DRUGS (5)
  1. ACCORD DOCETAXEL [Suspect]
     Active Substance: DOCETAXEL
     Indication: BREAST CANCER
     Dosage: 4TH COURSE ?DOSAGE: 75 MG/M2
     Route: 042
     Dates: start: 20140709, end: 20140709
  2. CYCLOPHOSPHAMIDE BAXTER [Concomitant]
     Active Substance: CYCLOPHOSPHAMIDE
     Indication: BREAST CANCER
     Dosage: DOSAGE: 600 MG/M2?4TH COURSE
     Dates: start: 20140709
  3. METHYLPREDNISOLONE. [Concomitant]
     Active Substance: METHYLPREDNISOLONE
     Indication: BREAST CANCER
     Dosage: 4TH COURSE
     Dates: start: 20140709
  4. ONDANSETRON [Concomitant]
     Active Substance: ONDANSETRON
     Indication: BREAST CANCER
     Dosage: 4TH COURSE
     Dates: start: 20140709
  5. POLARAMINE [Concomitant]
     Active Substance: DEXCHLORPHENIRAMINE MALEATE
     Indication: BREAST CANCER
     Dosage: 4TH COURSE
     Dates: start: 20140709

REACTIONS (2)
  - Hot flush [Recovered/Resolved]
  - Erythema [Recovered/Resolved]

NARRATIVE: CASE EVENT DATE: 20140709
